FAERS Safety Report 23389795 (Version 2)
Quarter: 2024Q1

REPORT INFORMATION
  Report Type: Spontaneous
  Country: GB (occurrence: GB)
  Receive Date: 20240111
  Receipt Date: 20240125
  Transmission Date: 20240409
  Serious: Yes (Death, Life-Threatening, Hospitalization, Other)
  Sender: FDA-Public Use
  Company Number: None

PATIENT

DRUGS (1)
  1. MEPOLIZUMAB [Suspect]
     Active Substance: MEPOLIZUMAB
     Indication: Asthma
     Dosage: UNK
     Route: 065
     Dates: start: 20231117

REACTIONS (3)
  - Infection [Fatal]
  - Multiple organ dysfunction syndrome [Fatal]
  - Wound necrosis [Unknown]

NARRATIVE: CASE EVENT DATE: 20231229
